FAERS Safety Report 4633546-1 (Version None)
Quarter: 2005Q2

REPORT INFORMATION
  Report Type: 
  Country: None (occurrence: None)
  Receive Date: 20050331
  Receipt Date: 20041203
  Transmission Date: 20051028
  Serious: Yes (Other)
  Sender: FDA-Public Use
  Company Number: 200415860BCC

PATIENT
  Age: 74 Year
  Sex: Female
  Weight: 81.6475 kg

DRUGS (6)
  1. ALEVE (CAPLET) [Suspect]
     Indication: BACK PAIN
     Dosage: 440 MG, QD, ORAL
     Route: 048
     Dates: start: 20041126, end: 20041202
  2. CELEBREX [Concomitant]
  3. SYNTHROID [Concomitant]
  4. PRILOSEC [Concomitant]
  5. DITROPAN /USA/ [Concomitant]
  6. VERAPAMIL [Concomitant]

REACTIONS (4)
  - DYSPNOEA [None]
  - EYE SWELLING [None]
  - HEADACHE [None]
  - HERPES SIMPLEX [None]
